FAERS Safety Report 12396462 (Version 1)
Quarter: 2016Q2

REPORT INFORMATION
  Report Type: Spontaneous
  Country: US (occurrence: None)
  Receive Date: 20160523
  Receipt Date: 20160523
  Transmission Date: 20160815
  Serious: Yes (Life-Threatening)
  Sender: FDA-Public Use
  Company Number: None

PATIENT
  Age: 76 Year
  Sex: Male
  Weight: 106 kg

DRUGS (1)
  1. APIXABAN, 5MG [Suspect]
     Active Substance: APIXABAN
     Indication: ATRIAL FIBRILLATION
     Route: 048

REACTIONS (5)
  - Abdominal pain [None]
  - Haematochezia [None]
  - Tumour haemorrhage [None]
  - Hepatic mass [None]
  - Peritoneal haemorrhage [None]

NARRATIVE: CASE EVENT DATE: 20150416
